FAERS Safety Report 4586777-3 (Version None)
Quarter: 2005Q1

REPORT INFORMATION
  Report Type: 
  Country: None (occurrence: None)
  Receive Date: 20050217
  Receipt Date: 20050217
  Transmission Date: 20050727
  Serious: Yes (Hospitalization)
  Sender: FDA-Public Use
  Company Number: None

PATIENT
  Age: 62 Year
  Sex: Female
  Weight: 39.5 kg

DRUGS (7)
  1. TARGRETIN [Suspect]
     Indication: LUNG CANCER METASTATIC
     Dosage: 548 MG=7 TAB   QD   ORAL
     Route: 048
     Dates: start: 20050125, end: 20050205
  2. DOCETAXEL        AVENTIS [Suspect]
     Dosage: 34.25 MG   QWK.X3/ 4 WK C   INTRAVENOU
     Route: 042
     Dates: start: 20050125, end: 20050201
  3. ZYBAN [Concomitant]
  4. AMBIEN [Concomitant]
  5. ZOFRAN [Concomitant]
  6. XANAX [Concomitant]
  7. ARANESP [Concomitant]

REACTIONS (7)
  - ABDOMINAL DISCOMFORT [None]
  - LUNG NEOPLASM [None]
  - PLEURAL EFFUSION [None]
  - PNEUMONIA [None]
  - PNEUMOTHORAX [None]
  - PULMONARY MASS [None]
  - RECALL PHENOMENON [None]
